FAERS Safety Report 11867591 (Version 1)
Quarter: 2015Q4

REPORT INFORMATION
  Report Type: Spontaneous
  Country: US (occurrence: US)
  Receive Date: 20151224
  Receipt Date: 20151224
  Transmission Date: 20160305
  Serious: Yes (Other)
  Sender: FDA-Public Use
  Company Number: PHEH2015US026558

PATIENT
  Sex: Female

DRUGS (1)
  1. GLEEVEC [Suspect]
     Active Substance: IMATINIB MESYLATE
     Indication: GASTRIC CANCER
     Dosage: 600 MG, QD
     Route: 048
     Dates: start: 20150602

REACTIONS (3)
  - Gastric cancer [Unknown]
  - Malignant neoplasm progression [Unknown]
  - Product use issue [Unknown]
